FAERS Safety Report 15141714 (Version 1)
Quarter: 2018Q3

REPORT INFORMATION
  Report Type: Spontaneous
  Country: US (occurrence: US)
  Receive Date: 20180713
  Receipt Date: 20180713
  Transmission Date: 20181010
  Serious: No
  Sender: FDA-Public Use
  Company Number: US-ASTELLAS-2018US018356

PATIENT
  Age: 54 Year
  Sex: Female

DRUGS (2)
  1. MYRBETRIQ [Suspect]
     Active Substance: MIRABEGRON
     Route: 065
  2. MYRBETRIQ [Suspect]
     Active Substance: MIRABEGRON
     Indication: PRODUCT USED FOR UNKNOWN INDICATION
     Route: 065

REACTIONS (7)
  - Nasal obstruction [Unknown]
  - Hypersensitivity [Unknown]
  - Oedema peripheral [Unknown]
  - Urine output decreased [Unknown]
  - Urinary incontinence [Unknown]
  - Nasopharyngitis [Unknown]
  - Blood pressure increased [Unknown]
